FAERS Safety Report 9440029 (Version 2)
Quarter: 2013Q4

REPORT INFORMATION
  Report Type: Report from Study
  Country: JP (occurrence: JP)
  Receive Date: 20130805
  Receipt Date: 20131101
  Transmission Date: 20140711
  Serious: Yes (Hospitalization)
  Sender: FDA-Public Use
  Company Number: JP-VERTEX PHARMACEUTICAL INC.-2012-024333

PATIENT
  Age: 68 Year
  Sex: Female

DRUGS (22)
  1. VX-950 (TELAPREVIR) [Suspect]
     Indication: CHRONIC HEPATITIS C
     Dosage: 2250 MG, QD
     Route: 048
     Dates: start: 20120724, end: 20120820
  2. VX-950 (TELAPREVIR) [Suspect]
     Dosage: 1500 MG, QD
     Route: 048
     Dates: start: 20120822, end: 20120924
  3. RIBAVIRIN [Suspect]
     Indication: CHRONIC HEPATITIS C
     Dosage: 600 MG, QD
     Route: 048
     Dates: start: 20120724, end: 20120806
  4. RIBAVIRIN [Suspect]
     Dosage: 400 MG, QD
     Route: 048
     Dates: start: 20120807, end: 20120903
  5. RIBAVIRIN [Suspect]
     Dosage: 200 MG, QD
     Route: 048
     Dates: start: 20120904, end: 20120917
  6. RIBAVIRIN [Suspect]
     Dosage: 200 MG, QD
     Route: 048
     Dates: start: 20121016, end: 20121022
  7. RIBAVIRIN [Suspect]
     Dosage: 400 MG, QD
     Route: 048
     Dates: start: 20121023, end: 20121105
  8. RIBAVIRIN [Suspect]
     Dosage: 200 MG, QD
     Route: 048
     Dates: start: 20121106, end: 20121126
  9. RIBAVIRIN [Suspect]
     Dosage: 400 MG, QD
     Route: 048
     Dates: start: 20121127, end: 20121217
  10. RIBAVIRIN [Suspect]
     Dosage: 300 MG, QD
     Route: 048
     Dates: start: 20121218, end: 20130204
  11. PEGINTERFERON ALFA-2B [Suspect]
     Indication: CHRONIC HEPATITIS C
     Dosage: 1.5 ?G/KG, QW
     Route: 058
     Dates: start: 20120724, end: 20120731
  12. PEGINTERFERON ALFA-2B [Suspect]
     Dosage: 0.75 ?G/KG, QW
     Route: 058
     Dates: start: 20120807, end: 20120828
  13. PEGINTERFERON ALFA-2B [Suspect]
     Dosage: 0.38 ?G/KG, QW
     Route: 058
     Dates: start: 20120904, end: 20120904
  14. PEGINTERFERON ALFA-2B [Suspect]
     Dosage: 0.75 ?G/KG, QW
     Route: 058
     Dates: start: 20120911, end: 20120911
  15. PEGINTERFERON ALFA-2B [Suspect]
     Dosage: 0.75 ?G/KG, QW
     Route: 058
     Dates: start: 20121016, end: 20121016
  16. PEGINTERFERON ALFA-2B [Suspect]
     Dosage: 0.9 ?G/KG, QW
     Route: 058
     Dates: start: 20121023, end: 20121106
  17. PEGINTERFERON ALFA-2B [Suspect]
     Dosage: 1.0 ?G/KG, QW
     Route: 058
     Dates: start: 20121113, end: 20121113
  18. PEGINTERFERON ALFA-2B [Suspect]
     Dosage: 1.3 ?G/KG, QW
     Route: 058
     Dates: start: 20121120, end: 20121120
  19. PEGINTERFERON ALFA-2B [Suspect]
     Dosage: 1.5 ?G/KG, QW
     Route: 058
     Dates: start: 20121127, end: 20130129
  20. SELBEX [Concomitant]
     Dosage: 50 MG, QD
     Route: 048
  21. PEGASYS [Concomitant]
     Dosage: 90 ?G, QD
     Route: 051
     Dates: start: 20120518, end: 20120518
  22. PEGASYS [Concomitant]
     Dosage: 90 ?G, QD
     Route: 048
     Dates: start: 20120611, end: 20120611

REACTIONS (3)
  - Malaise [Recovered/Resolved]
  - Oedema peripheral [Recovered/Resolved]
  - Anaemia [Recovered/Resolved]
